FAERS Safety Report 13626942 (Version 1)
Quarter: 2017Q2

REPORT INFORMATION
  Report Type: Spontaneous
  Country: US (occurrence: US)
  Receive Date: 20170607
  Receipt Date: 20170607
  Transmission Date: 20170830
  Serious: Yes (Disabling)
  Sender: FDA-Public Use
  Company Number: None

PATIENT
  Age: 59 Year
  Sex: Female
  Weight: 119.2 kg

DRUGS (3)
  1. DULERA [Concomitant]
     Active Substance: FORMOTEROL FUMARATE DIHYDRATE\MOMETASONE FUROATE
  2. PROVENTIL [Concomitant]
     Active Substance: ALBUTEROL
  3. SINGULAIR [Suspect]
     Active Substance: MONTELUKAST SODIUM
     Indication: ASTHMA
     Route: 048
     Dates: start: 20130901, end: 20160201

REACTIONS (2)
  - Weight increased [None]
  - Frustration tolerance decreased [None]

NARRATIVE: CASE EVENT DATE: 20160601
